FAERS Safety Report 19559543 (Version 1)
Quarter: 2021Q3

REPORT INFORMATION
  Report Type: Report from Study
  Country: US (occurrence: US)
  Receive Date: 20210715
  Receipt Date: 20210715
  Transmission Date: 20211014
  Serious: Yes (Death, Life-Threatening, Hospitalization, Other)
  Sender: FDA-Public Use
  Company Number: US-ROCHE-2631535

PATIENT
  Age: 65 Year
  Sex: Female
  Weight: 80.9 kg

DRUGS (34)
  1. RITUXIMAB. [Suspect]
     Active Substance: RITUXIMAB
     Route: 042
     Dates: start: 20191231
  2. ACICLOVIR [Concomitant]
     Active Substance: ACYCLOVIR
  3. CHOLECALCIFEROL [Concomitant]
     Active Substance: CHOLECALCIFEROL
  4. GABAPENTIN. [Concomitant]
     Active Substance: GABAPENTIN
  5. OMEPRAZOLE. [Concomitant]
     Active Substance: OMEPRAZOLE
  6. ATEZOLIZUMAB. [Suspect]
     Active Substance: ATEZOLIZUMAB
     Indication: DIFFUSE LARGE B-CELL LYMPHOMA
     Dosage: ON 25/MAR/2020, SHE RECEIVED LAST DOSE OF INTRAVENOUS ATEZOLIZUMAB (1200 MG) PRIOR TO THE ONSET OF S
     Route: 042
     Dates: start: 20191121
  7. GEMCITABINE HYDROCHLORIDE. [Suspect]
     Active Substance: GEMCITABINE HYDROCHLORIDE
     Indication: DIFFUSE LARGE B-CELL LYMPHOMA
     Route: 042
     Dates: start: 202002, end: 202003
  8. OXALIPLATIN. [Suspect]
     Active Substance: OXALIPLATIN
     Route: 042
     Dates: start: 20191231
  9. ONDANSETRON [Concomitant]
     Active Substance: ONDANSETRON
  10. ATEZOLIZUMAB. [Suspect]
     Active Substance: ATEZOLIZUMAB
     Dosage: ON 25/MAR/2020, SHE RECEIVED LAST DOSE OF INTRAVENOUS ATEZOLIZUMAB (1200 MG) PRIOR TO THE ONSET OF S
     Route: 042
     Dates: start: 202002, end: 202003
  11. HYDROXYZINE [Concomitant]
     Active Substance: HYDROXYZINE HYDROCHLORIDE
  12. LEVOTHYROXINE. [Concomitant]
     Active Substance: LEVOTHYROXINE
  13. RITUXIMAB. [Suspect]
     Active Substance: RITUXIMAB
     Route: 042
     Dates: start: 202002, end: 202003
  14. CALCIUM CARBONATE. [Concomitant]
     Active Substance: CALCIUM CARBONATE
  15. PROMETHAZINE [Concomitant]
     Active Substance: PROMETHAZINE HYDROCHLORIDE
  16. ATEZOLIZUMAB. [Suspect]
     Active Substance: ATEZOLIZUMAB
     Dosage: LAST ADMINISTERED DATE 14/JAN/2020?TOTAL DOSE ADMINISTERED THIS DOSE: 1680 MG
     Route: 042
     Dates: start: 20191231
  17. ATEZOLIZUMAB. [Suspect]
     Active Substance: ATEZOLIZUMAB
     Route: 042
     Dates: start: 202002
  18. GEMCITABINE HYDROCHLORIDE. [Suspect]
     Active Substance: GEMCITABINE HYDROCHLORIDE
     Dosage: LAST ADMINISTERED DATE 31/DEC/2019
     Route: 042
     Dates: start: 20191231
  19. LORAZEPAM. [Concomitant]
     Active Substance: LORAZEPAM
  20. ALBUTEROL. [Concomitant]
     Active Substance: ALBUTEROL
  21. ALENDRONATE [Concomitant]
     Active Substance: ALENDRONATE SODIUM
  22. DOCUSATE [Concomitant]
     Active Substance: DOCUSATE
  23. MONTELUKAST [Concomitant]
     Active Substance: MONTELUKAST SODIUM
  24. OXYCODONE [Concomitant]
     Active Substance: OXYCODONE
  25. GEMCITABINE HYDROCHLORIDE. [Suspect]
     Active Substance: GEMCITABINE HYDROCHLORIDE
     Route: 042
     Dates: start: 20191121
  26. OXALIPLATIN. [Suspect]
     Active Substance: OXALIPLATIN
     Indication: DIFFUSE LARGE B-CELL LYMPHOMA
     Route: 042
     Dates: start: 202002
  27. ATENOLOL. [Concomitant]
     Active Substance: ATENOLOL
  28. RITUXIMAB. [Suspect]
     Active Substance: RITUXIMAB
     Route: 042
     Dates: start: 202003
  29. APIXABAN [Concomitant]
     Active Substance: APIXABAN
  30. POLYETHYLENE GLYCOL 3350. [Concomitant]
     Active Substance: POLYETHYLENE GLYCOL 3350
  31. POTASSIUM CHLORIDE. [Concomitant]
     Active Substance: POTASSIUM CHLORIDE
  32. SENNA [Concomitant]
     Active Substance: SENNA LEAF\SENNOSIDES\SENNOSIDES A AND B
  33. RITUXIMAB. [Suspect]
     Active Substance: RITUXIMAB
     Indication: DIFFUSE LARGE B-CELL LYMPHOMA
     Dosage: ON 31/DEC/2019, RECEIVED SUBSEQUENT DOSE OF RITUXIMAB. ON 25/MAR/2020, HE RECEIVED LAST DOSE OF INTR
     Route: 042
     Dates: start: 20191121
  34. OXALIPLATIN. [Suspect]
     Active Substance: OXALIPLATIN
     Route: 042
     Dates: start: 20191121

REACTIONS (7)
  - Hypotension [Unknown]
  - Fracture [Unknown]
  - Disease progression [Fatal]
  - Febrile neutropenia [Recovered/Resolved with Sequelae]
  - Pyrexia [Unknown]
  - Neutrophil count decreased [Unknown]
  - Sepsis [Unknown]

NARRATIVE: CASE EVENT DATE: 20200127
